FAERS Safety Report 20490543 (Version 1)
Quarter: 2022Q1

REPORT INFORMATION
  Report Type: Spontaneous
  Country: US (occurrence: US)
  Receive Date: 20220218
  Receipt Date: 20220218
  Transmission Date: 20220423
  Serious: Yes (Death, Hospitalization)
  Sender: FDA-Public Use
  Company Number: US-TEVA-2022-US-2008547

PATIENT
  Age: 83 Year
  Sex: Female

DRUGS (6)
  1. AZILECT [Suspect]
     Active Substance: RASAGILINE MESYLATE
     Route: 065
  2. XARELTO [Suspect]
     Active Substance: RIVAROXABAN
     Route: 065
  3. LIPITOR [Suspect]
     Active Substance: ATORVASTATIN CALCIUM
     Route: 065
  4. SINGULAIR [Suspect]
     Active Substance: MONTELUKAST SODIUM
     Route: 065
  5. COSOPT PF [Suspect]
     Active Substance: DORZOLAMIDE HYDROCHLORIDE\TIMOLOL MALEATE
     Route: 065
     Dates: start: 2018
  6. RYTARY [Suspect]
     Active Substance: CARBIDOPA\LEVODOPA
     Route: 065

REACTIONS (2)
  - COVID-19 [Fatal]
  - Acute respiratory failure [Fatal]
